FAERS Safety Report 25050256 (Version 1)
Quarter: 2025Q1

REPORT INFORMATION
  Report Type: Report from Study
  Country: BR (occurrence: BR)
  Receive Date: 20250307
  Receipt Date: 20250307
  Transmission Date: 20250409
  Serious: Yes (Other)
  Sender: AMGEN
  Company Number: BR-AMGEN-BRASL2024165927

PATIENT
  Age: 51 Year
  Sex: Female

DRUGS (5)
  1. VECTIBIX [Suspect]
     Active Substance: PANITUMUMAB
     Indication: Colorectal cancer metastatic
     Route: 042
     Dates: start: 20240506
  2. VECTIBIX [Suspect]
     Active Substance: PANITUMUMAB
     Dosage: UNK UNK, Q2WK, EVERY 14 DAYS
     Route: 040
     Dates: start: 2024
  3. VECTIBIX [Suspect]
     Active Substance: PANITUMUMAB
     Route: 040
  4. PANTOPRAZOLE SODIUM [Concomitant]
     Active Substance: PANTOPRAZOLE SODIUM
     Dosage: 40 MILLIGRAM, QD, 40 MILLIGRAM (ON AN EMPTY STOMACH), 40 MG 1 TABLET IN THE MORNING ON AN EMPTY STOM
     Route: 065
  5. DOXYCYCLINE [Concomitant]
     Active Substance: DOXYCYCLINE
     Dosage: 100 MILLIGRAM, QD
     Route: 065

REACTIONS (25)
  - Anaemia [Recovering/Resolving]
  - Platelet count decreased [Recovering/Resolving]
  - Decreased immune responsiveness [Recovering/Resolving]
  - Skin discolouration [Recovering/Resolving]
  - Ageusia [Not Recovered/Not Resolved]
  - Oral discomfort [Not Recovered/Not Resolved]
  - Gastritis [Not Recovered/Not Resolved]
  - Oral disorder [Recovering/Resolving]
  - Angular cheilitis [Recovering/Resolving]
  - Nail cuticle fissure [Recovering/Resolving]
  - Skin burning sensation [Recovering/Resolving]
  - Depression [Recovered/Resolved]
  - Discouragement [Recovered/Resolved]
  - Constipation [Not Recovered/Not Resolved]
  - Pruritus [Recovering/Resolving]
  - Diarrhoea [Recovering/Resolving]
  - Epistaxis [Recovering/Resolving]
  - Acne [Recovering/Resolving]
  - Skin exfoliation [Not Recovered/Not Resolved]
  - Skin fissures [Recovering/Resolving]
  - Abdominal pain [Recovering/Resolving]
  - Dry skin [Not Recovered/Not Resolved]
  - Dry mouth [Not Recovered/Not Resolved]
  - Asthenia [Recovering/Resolving]
  - Nausea [Recovering/Resolving]

NARRATIVE: CASE EVENT DATE: 20240101
